FAERS Safety Report 17862119 (Version 5)
Quarter: 2021Q1

REPORT INFORMATION
  Report Type: Spontaneous
  Country: US (occurrence: US)
  Receive Date: 20200604
  Receipt Date: 20210114
  Transmission Date: 20210419
  Serious: Yes (Congenital Anomaly, Other)
  Sender: FDA-Public Use
  Company Number: NVSC2020US156266

PATIENT
  Sex: Female

DRUGS (2)
  1. ZOFRAN ODT [Suspect]
     Active Substance: ONDANSETRON HYDROCHLORIDE
     Indication: FOETAL EXPOSURE DURING PREGNANCY
     Dosage: MOTHER DOSE: 08 MG, DAILY
     Route: 064
  2. ZOFRAN [Suspect]
     Active Substance: ONDANSETRON HYDROCHLORIDE
     Indication: FOETAL EXPOSURE DURING PREGNANCY
     Route: 064

REACTIONS (73)
  - Atrial septal defect [Unknown]
  - Multiple cardiac defects [Unknown]
  - Acute respiratory failure [Unknown]
  - Rectal haemorrhage [Unknown]
  - Foetal exposure during pregnancy [Unknown]
  - Emotional distress [Unknown]
  - Anhedonia [Unknown]
  - Chest pain [Unknown]
  - Hypotension [Unknown]
  - Chest discomfort [Unknown]
  - Gastroenteritis [Unknown]
  - Neck pain [Unknown]
  - Congenital anomaly [Unknown]
  - Pyelonephritis [Unknown]
  - Injury [Not Recovered/Not Resolved]
  - Deformity [Unknown]
  - Nausea [Unknown]
  - Lid sulcus deepened [Unknown]
  - Rhinitis allergic [Unknown]
  - Sleep apnoea syndrome [Unknown]
  - Arthralgia [Unknown]
  - Back pain [Unknown]
  - Pruritus [Unknown]
  - Feeding disorder [Unknown]
  - Bronchitis [Unknown]
  - Adenoidal hypertrophy [Unknown]
  - Cardiac murmur [Unknown]
  - Blood pressure systolic decreased [Unknown]
  - Superior vena cava syndrome [Unknown]
  - Urticaria [Unknown]
  - Dyspnoea [Unknown]
  - Dry mouth [Unknown]
  - Acne [Unknown]
  - Electrocardiogram ST segment elevation [Unknown]
  - Pericardial effusion [Unknown]
  - Upper airway obstruction [Unknown]
  - Headache [Unknown]
  - Right ventricular enlargement [Unknown]
  - Neutrophil count increased [Unknown]
  - Blood pressure diastolic decreased [Unknown]
  - Fatigue [Unknown]
  - Constipation [Unknown]
  - Anomalous pulmonary venous connection [Unknown]
  - Arrhythmia [Unknown]
  - Blood glucose increased [Unknown]
  - Decreased appetite [Unknown]
  - Somnolence [Unknown]
  - Hyperglycaemia [Unknown]
  - Anxiety [Unknown]
  - Palpitations [Unknown]
  - Right ventricular dilatation [Unknown]
  - Right atrial dilatation [Unknown]
  - White blood cell count increased [Unknown]
  - Asthma [Unknown]
  - Postpericardiotomy syndrome [Unknown]
  - Conjunctivitis [Unknown]
  - Tendonitis [Unknown]
  - Tonsillar hypertrophy [Unknown]
  - Nasal turbinate hypertrophy [Unknown]
  - Pain in extremity [Unknown]
  - Heart disease congenital [Unknown]
  - Pneumothorax [Unknown]
  - Pain [Unknown]
  - Seasonal allergy [Unknown]
  - Haemoglobin decreased [Unknown]
  - Pyrexia [Unknown]
  - Dehydration [Unknown]
  - Dizziness [Unknown]
  - Urinary tract infection [Unknown]
  - Cough [Unknown]
  - Nasal septum deviation [Unknown]
  - Abdominal pain [Unknown]
  - Hypersensitivity [Unknown]
